FAERS Safety Report 21847978 (Version 5)
Quarter: 2024Q4

REPORT INFORMATION
  Report Type: Report from Study
  Country: US (occurrence: US)
  Receive Date: 20230111
  Receipt Date: 20241029
  Transmission Date: 20250115
  Serious: Yes (Other)
  Sender: NOVARTIS
  Company Number: US-002147023-NVSC2023US005887

PATIENT
  Sex: Female

DRUGS (5)
  1. KISQALI [Suspect]
     Active Substance: RIBOCICLIB
     Indication: Product used for unknown indication
     Dosage: UNK
     Route: 048
     Dates: start: 20230110
  2. KISQALI [Suspect]
     Active Substance: RIBOCICLIB
     Dosage: UNK,  2 CYCLIC
     Route: 048
     Dates: start: 20230110
  3. KISQALI [Suspect]
     Active Substance: RIBOCICLIB
     Dosage: UNK,  3 CYCLIC
     Route: 048
  4. KISQALI [Suspect]
     Active Substance: RIBOCICLIB
     Dosage: 400 MG, QD
     Route: 048
  5. LETROZOLE [Suspect]
     Active Substance: LETROZOLE
     Indication: Product used for unknown indication
     Dosage: 2.5 MG, QD
     Route: 048

REACTIONS (9)
  - Metastases to lung [Unknown]
  - Metastases to bone [Unknown]
  - Hot flush [Unknown]
  - Nausea [Unknown]
  - Fatigue [Recovering/Resolving]
  - Pruritus [Unknown]
  - Night sweats [Unknown]
  - Weight decreased [Unknown]
  - Platelet count abnormal [Unknown]
